FAERS Safety Report 7185364-0 (Version None)
Quarter: 2010Q4

REPORT INFORMATION
  Report Type: 
  Country: None (occurrence: None)
  Receive Date: 20101222
  Receipt Date: 20101214
  Transmission Date: 20110411
  Serious: Yes (Other)
  Sender: FDA-Public Use
  Company Number: JP-PFIZER INC-2010162165

PATIENT
  Age: 80 Year
  Sex: Female

DRUGS (17)
  1. LYRICA [Suspect]
     Indication: NEURALGIA
     Dosage: 375 MG, A DAY
     Route: 048
     Dates: start: 20100701, end: 20101130
  2. LYRICA [Suspect]
     Dosage: 300 MG, A DAY
     Route: 048
     Dates: start: 20101201
  3. NORVASC [Suspect]
     Dosage: 5 MG, A DAY
     Route: 048
  4. BLOPRESS [Suspect]
     Dosage: 8 MG, A DAY
     Route: 048
  5. AMARYL [Suspect]
     Dosage: 0.5 MG, A DAY
     Route: 048
  6. FLUITRAN [Concomitant]
     Dosage: 0.5 MG, A DAY
     Route: 048
  7. TAKEPRON [Concomitant]
     Dosage: 15 MG, A DAY
     Route: 048
  8. ALDACTONE [Concomitant]
     Dosage: 50 MG, A DAY
     Route: 048
  9. PURSENNID [Concomitant]
     Dosage: 50 MG, A DAY
     Route: 048
  10. LENDORMIN [Concomitant]
     Dosage: 0.5 MG,  A DAY
     Route: 048
  11. AZULFIDINE [Concomitant]
     Dosage: 1000 MG, A DAY
     Route: 048
  12. HYPEN [Concomitant]
     Dosage: 400 MG, A DAY
     Route: 048
  13. FERROUS CITRATE [Concomitant]
     Dosage: 100 MG, A DAY
     Route: 048
  14. BIOFERMIN [Concomitant]
     Dosage: 3 DF, A DAY
     Route: 048
  15. PROCYLIN [Concomitant]
     Dosage: 60 MG, A DAY
     Route: 048
  16. LEUCON [Concomitant]
     Dosage: 60 MG, A DAY
  17. HERBESSER ^TANABE^ [Concomitant]
     Dosage: 30 MG, A DAY

REACTIONS (2)
  - BLOOD CREATINE PHOSPHOKINASE INCREASED [None]
  - BLOOD UREA INCREASED [None]
